FAERS Safety Report 5605995-6 (Version None)
Quarter: 2008Q1

REPORT INFORMATION
  Report Type: 
  Country: None (occurrence: None)
  Receive Date: 20080123
  Receipt Date: 20080123
  Transmission Date: 20080703
  Serious: No
  Sender: FDA-Public Use
  Company Number: None

PATIENT
  Age: 61 Year
  Sex: Female
  Weight: 49.8957 kg

DRUGS (1)
  1. LEVAQUIN [Suspect]
     Indication: SINUSITIS
     Dosage: ONE PILL DAILY  4 DAYS
     Dates: start: 20080102, end: 20080105

REACTIONS (3)
  - ASTHENIA [None]
  - GAIT DISTURBANCE [None]
  - PAIN IN EXTREMITY [None]
